FAERS Safety Report 18819123 (Version 1)
Quarter: 2021Q1

REPORT INFORMATION
  Report Type: Spontaneous
  Country: US (occurrence: US)
  Receive Date: 20210202
  Receipt Date: 20210202
  Transmission Date: 20210419
  Serious: No
  Sender: FDA-Public Use
  Company Number: US-009507513-2101USA001215

PATIENT
  Age: 88 Year
  Sex: Male

DRUGS (4)
  1. JANUVIA [Suspect]
     Active Substance: SITAGLIPTIN PHOSPHATE
     Indication: DIABETES MELLITUS
     Dosage: 100MG ONCE DAILY
  2. DIGOXIN. [Concomitant]
     Active Substance: DIGOXIN
  3. OXYCODONE [Concomitant]
     Active Substance: OXYCODONE
  4. ELIQUIS [Concomitant]
     Active Substance: APIXABAN

REACTIONS (1)
  - Arthralgia [Not Recovered/Not Resolved]

NARRATIVE: CASE EVENT DATE: 202010
